FAERS Safety Report 7211343-0 (Version None)
Quarter: 2011Q1

REPORT INFORMATION
  Report Type: 
  Country: None (occurrence: None)
  Receive Date: 20110105
  Receipt Date: 20101223
  Transmission Date: 20110831
  Serious: Yes (Hospitalization, Other)
  Sender: FDA-Public Use
  Company Number: AU-ASTRAZENECA-2010SE54938

PATIENT
  Age: 0 Day
  Sex: Male
  Weight: 3.9 kg

DRUGS (6)
  1. SEROQUEL XR [Suspect]
     Indication: PSYCHOTIC DISORDER
     Dosage: 50 MG DAILY STARTED PRE-PREGNANCY STOPPED AT 39/40 WEEKS
     Route: 064
  2. FEFOL [Concomitant]
     Indication: VITAMIN SUPPLEMENTATION
     Dosage: 1 TABLET DAILY FROM THE FIRST TRIMESTER
     Route: 064
  3. FEFOL [Concomitant]
     Indication: MINERAL SUPPLEMENTATION
     Dosage: 1 TABLET DAILY FROM THE FIRST TRIMESTER
     Route: 064
  4. LEXAPRO [Suspect]
     Indication: ANTIDEPRESSANT THERAPY
     Dosage: 10 MG DAILY STARTED PRE-PREGNANCY STOPPED AT 10/40 WEEK
     Route: 064
  5. LAMOTRIGINE [Suspect]
     Indication: AFFECTIVE DISORDER
     Dosage: 200 MG DAILY STARTED AT 11/40 WEEK
     Route: 064
  6. VALPROATE SODIUM [Suspect]
     Indication: AFFECTIVE DISORDER
     Dosage: 1000 MG DAILY STARTED PRE-PREGNANCY STOPPED AT 10/40 WEEK
     Route: 064

REACTIONS (1)
  - DRUG WITHDRAWAL SYNDROME NEONATAL [None]
